FAERS Safety Report 6779318-3 (Version None)
Quarter: 2010Q2

REPORT INFORMATION
  Report Type: 
  Country: None (occurrence: None)
  Receive Date: 20100618
  Receipt Date: 20100607
  Transmission Date: 20101027
  Serious: Yes (Other)
  Sender: FDA-Public Use
  Company Number: PHHY2010GB18940

PATIENT
  Sex: Male
  Weight: 81 kg

DRUGS (3)
  1. CLOZARIL [Suspect]
     Indication: SCHIZOPHRENIA
     Dosage: UNK
     Dates: start: 19910101
  2. CLOZARIL [Suspect]
     Indication: HALLUCINATION, AUDITORY
     Dosage: 300 MG, QD
     Route: 048
     Dates: start: 20031108
  3. DIAZEPAM [Concomitant]
     Indication: ANXIETY
     Dosage: 5 MG, PRN - LESS THAN 1 PER WEEK
     Route: 048
     Dates: start: 20091101

REACTIONS (2)
  - AURAL POLYP [None]
  - EAR OPERATION [None]
